FAERS Safety Report 8403038-2 (Version None)
Quarter: 2012Q2

REPORT INFORMATION
  Report Type: 
  Country: None (occurrence: None)
  Receive Date: 20120601
  Receipt Date: 20120522
  Transmission Date: 20120825
  Serious: Yes (Hospitalization, Other)
  Sender: FDA-Public Use
  Company Number: US-ELI_LILLY_AND_COMPANY-US201203007771

PATIENT
  Sex: Female
  Weight: 74.83 kg

DRUGS (18)
  1. CALCIUM [Concomitant]
  2. CYMBALTA [Concomitant]
     Dosage: 30 MG, UNK
  3. FORTEO [Suspect]
     Indication: OSTEOPOROSIS
     Dosage: 20 UG, QD
     Route: 058
     Dates: start: 20091020, end: 20111012
  4. SYNTHROID [Concomitant]
     Dosage: 75 UG, UNK
  5. XANAX [Concomitant]
     Dosage: 0.25 MG, PRN
  6. RESTORIL [Concomitant]
     Dosage: 15 MG, UNK
  7. CELEBREX [Concomitant]
     Dosage: 200 MG, UNK
  8. COLACE [Concomitant]
  9. EXCEDRIN (MIGRAINE) [Concomitant]
     Dosage: UNK, PRN
  10. ASMANEX TWISTHALER [Concomitant]
     Dosage: 220 MCG/INN
  11. DIOVAN [Concomitant]
     Dosage: 80 MG, UNK
  12. DOMPERIDONE [Concomitant]
  13. SPIRIVA [Concomitant]
     Dosage: 18 UG, UNK
  14. POTASSIUM CHLORIDE [Concomitant]
  15. REVIA [Concomitant]
  16. CALTRATE +VIT.D [Concomitant]
     Dosage: 1 DF, UNK
  17. LORTAB [Concomitant]
  18. MULTI-VITAMIN [Concomitant]

REACTIONS (4)
  - FALL [None]
  - HIP FRACTURE [None]
  - BALANCE DISORDER [None]
  - FEMUR FRACTURE [None]
